FAERS Safety Report 24729940 (Version 1)
Quarter: 2024Q4

REPORT INFORMATION
  Report Type: Spontaneous
  Country: US (occurrence: US)
  Receive Date: 20241213
  Receipt Date: 20241213
  Transmission Date: 20250115
  Serious: Yes (Other)
  Sender: BRISTOL-MYERS SQUIBB COMPANY
  Company Number: US-BRISTOL-MYERS SQUIBB COMPANY-2024-191255

PATIENT
  Age: 54 Year
  Sex: Male
  Weight: 115.67 kg

DRUGS (1)
  1. POMALYST [Suspect]
     Active Substance: POMALIDOMIDE
     Indication: Plasma cell myeloma
     Dosage: FREQUENCY: 3 WEEKS ON/1 WEEK OFF
     Route: 048

REACTIONS (2)
  - Diarrhoea [Recovering/Resolving]
  - Fistula [Recovering/Resolving]
